FAERS Safety Report 24795921 (Version 4)
Quarter: 2025Q1

REPORT INFORMATION
  Report Type: Report from Study
  Country: PR (occurrence: PR)
  Receive Date: 20250101
  Receipt Date: 20250218
  Transmission Date: 20250408
  Serious: Yes (Hospitalization, Other)
  Sender: Pyros Pharmaceuticals
  Company Number: PR-PYROS PHARMACEUTICALS, INC-2024-PYROS-PR000175

PATIENT
  Sex: Male
  Weight: 14 kg

DRUGS (4)
  1. VIGAFYDE [Suspect]
     Active Substance: VIGABATRIN
     Indication: Infantile spasms
     Dosage: 600 MG (6 ML), BID
     Route: 048
     Dates: start: 2024, end: 202412
  2. VIGAFYDE [Suspect]
     Active Substance: VIGABATRIN
     Dosage: 750 MG (7.5 ML), BID
     Route: 048
     Dates: start: 202412, end: 2025
  3. VIGAFYDE [Suspect]
     Active Substance: VIGABATRIN
     Dosage: 1000 MG (10 ML), BID
     Route: 048
     Dates: start: 2025
  4. TOPAMAX [Concomitant]
     Active Substance: TOPIRAMATE
     Indication: Seizure
     Dosage: 12.5 MG, BID DILUTED IN 5 ML
     Route: 048
     Dates: start: 202412

REACTIONS (8)
  - Failure to thrive [Recovered/Resolved]
  - Drug ineffective [Not Recovered/Not Resolved]
  - Anaemia [Recovered/Resolved]
  - Mood altered [Recovered/Resolved]
  - Asthenia [Recovered/Resolved]
  - Infantile spitting up [Recovering/Resolving]
  - Somnolence [Not Recovered/Not Resolved]
  - Decreased appetite [Recovered/Resolved]

NARRATIVE: CASE EVENT DATE: 20240101
